FAERS Safety Report 9387814 (Version 2)
Quarter: 2013Q3

REPORT INFORMATION
  Report Type: Report from Study
  Country: JP (occurrence: JP)
  Receive Date: 20130708
  Receipt Date: 20130807
  Transmission Date: 20140515
  Serious: Yes (Other)
  Sender: FDA-Public Use
  Company Number: JP-BAXTER-2013BAX025747

PATIENT
  Age: 27 Year
  Sex: Male
  Weight: 83 kg

DRUGS (12)
  1. FEIBA FOR INJECTION 1000 [Suspect]
     Indication: HAEMARTHROSIS
     Route: 042
     Dates: start: 20120702, end: 20120703
  2. FEIBA FOR INJECTION 1000 [Suspect]
     Indication: MUSCLE HAEMORRHAGE
     Route: 042
     Dates: start: 20120704, end: 20120704
  3. FEIBA FOR INJECTION 1000 [Suspect]
     Indication: HAEMOPHILIA A WITH ANTI FACTOR VIII
     Route: 042
     Dates: start: 20120930, end: 20120930
  4. FEIBA FOR INJECTION 1000 [Suspect]
     Indication: MUSCLE HAEMORRHAGE
     Route: 042
     Dates: start: 20121001, end: 20121005
  5. FEIBA FOR INJECTION 1000 [Suspect]
     Route: 042
     Dates: start: 20121006, end: 20121006
  6. NOVOSEVEN [Concomitant]
     Indication: HAEMARTHROSIS
     Route: 042
     Dates: start: 20120930, end: 20120930
  7. NOVOSEVEN [Concomitant]
     Indication: MUSCLE HAEMORRHAGE
     Route: 042
     Dates: start: 20121006, end: 20121008
  8. NOVOSEVEN [Concomitant]
     Route: 042
     Dates: start: 20120701, end: 20120701
  9. NOVOSEVEN [Concomitant]
     Route: 042
     Dates: start: 20120702, end: 20120702
  10. NOVOSEVEN [Concomitant]
     Route: 042
     Dates: start: 20121009, end: 20121009
  11. FEIBA [Concomitant]
     Indication: HAEMOSTASIS
     Route: 042
     Dates: end: 2006
  12. RFVIIA [Concomitant]
     Indication: HAEMOSTASIS
     Route: 042
     Dates: end: 2006

REACTIONS (1)
  - Factor VIII inhibition [Recovering/Resolving]
